FAERS Safety Report 4696731-9 (Version None)
Quarter: 2005Q2

REPORT INFORMATION
  Report Type: 
  Country: None (occurrence: None)
  Receive Date: 20050620
  Receipt Date: 20050606
  Transmission Date: 20051028
  Serious: Yes (Other)
  Sender: FDA-Public Use
  Company Number: HQWYE302807JUN05

PATIENT
  Age: 26 Year
  Sex: Female
  Weight: 72.64 kg

DRUGS (6)
  1. EFFEXOR [Suspect]
     Indication: MIGRAINE
     Dosage: SEE IMAGE
     Route: 048
     Dates: start: 20030801, end: 20050420
  2. EFFEXOR [Suspect]
     Indication: PROPHYLAXIS
     Dosage: SEE IMAGE
     Route: 048
     Dates: start: 20030801, end: 20050420
  3. EFFEXOR [Suspect]
     Indication: MIGRAINE
     Dosage: SEE IMAGE
     Route: 048
     Dates: start: 20050421, end: 20050518
  4. EFFEXOR [Suspect]
     Indication: PROPHYLAXIS
     Dosage: SEE IMAGE
     Route: 048
     Dates: start: 20050421, end: 20050518
  5. EFFEXOR [Suspect]
     Indication: MIGRAINE
     Dosage: SEE IMAGE
     Route: 048
     Dates: start: 20050519, end: 20050525
  6. EFFEXOR [Suspect]
     Indication: PROPHYLAXIS
     Dosage: SEE IMAGE
     Route: 048
     Dates: start: 20050519, end: 20050525

REACTIONS (10)
  - DEPENDENCE [None]
  - DISEASE RECURRENCE [None]
  - DRUG INEFFECTIVE FOR UNAPPROVED INDICATION [None]
  - DRUG WITHDRAWAL SYNDROME [None]
  - HYPOAESTHESIA [None]
  - LOSS OF LIBIDO [None]
  - MENTAL IMPAIRMENT [None]
  - MIGRAINE [None]
  - SOMNOLENCE [None]
  - WEIGHT INCREASED [None]
